FAERS Safety Report 9949307 (Version 2)
Quarter: 2014Q1

REPORT INFORMATION
  Report Type: Report from Study
  Country: US (occurrence: US)
  Receive Date: 20140304
  Receipt Date: 20140304
  Transmission Date: 20141002
  Serious: No
  Sender: FDA-Public Use
  Company Number: US-ABBVIE-12P-163-1024898-00

PATIENT
  Age: 48 Year
  Sex: Female

DRUGS (11)
  1. HUMIRA [Suspect]
     Indication: PSORIATIC ARTHROPATHY
     Route: 058
     Dates: start: 20121117
  2. LISINOPRIL HCTZ [Concomitant]
     Indication: HYPERTENSION
     Dosage: 20/25 MG DAILY
  3. LISINOPRIL HCTZ [Concomitant]
     Indication: BLOOD PRESSURE
  4. SULFASALAZINE [Concomitant]
     Indication: PRODUCT USED FOR UNKNOWN INDICATION
     Dosage: 2000MG DAILY
  5. WELLBUTRIN XL [Concomitant]
     Indication: DEPRESSION
     Dosage: SHE^S TAPERING OFF
  6. LAMICTAL [Concomitant]
     Indication: DEPRESSION
     Dosage: 300MG DAILY; SHE^S TAPERING OFF
  7. CALCIUM [Concomitant]
     Indication: PRODUCT USED FOR UNKNOWN INDICATION
  8. FISH OIL [Concomitant]
     Indication: PRODUCT USED FOR UNKNOWN INDICATION
  9. B12 [Concomitant]
     Indication: PRODUCT USED FOR UNKNOWN INDICATION
  10. B3 SUPPORT [Concomitant]
     Indication: PRODUCT USED FOR UNKNOWN INDICATION
  11. MULTIVITAMIN [Concomitant]
     Indication: PRODUCT USED FOR UNKNOWN INDICATION

REACTIONS (24)
  - Malaise [Recovering/Resolving]
  - Dry mouth [Recovering/Resolving]
  - Musculoskeletal stiffness [Recovering/Resolving]
  - Inappropriate schedule of drug administration [Unknown]
  - Headache [Recovering/Resolving]
  - Nausea [Recovering/Resolving]
  - Oedema peripheral [Recovering/Resolving]
  - Upper respiratory tract infection [Recovering/Resolving]
  - Sinus headache [Recovering/Resolving]
  - Injection site pain [Unknown]
  - Injection site papule [Not Recovered/Not Resolved]
  - Injection site haematoma [Unknown]
  - Injection site pain [Not Recovered/Not Resolved]
  - Night sweats [Not Recovered/Not Resolved]
  - Myalgia [Not Recovered/Not Resolved]
  - Fatigue [Not Recovered/Not Resolved]
  - Weight increased [Not Recovered/Not Resolved]
  - Increased upper airway secretion [Not Recovered/Not Resolved]
  - Productive cough [Not Recovered/Not Resolved]
  - Joint range of motion decreased [Not Recovered/Not Resolved]
  - Arthralgia [Not Recovered/Not Resolved]
  - Erythema [Not Recovered/Not Resolved]
  - Local swelling [Not Recovered/Not Resolved]
  - Skin burning sensation [Not Recovered/Not Resolved]
